FAERS Safety Report 9757512 (Version 2)
Quarter: 2013Q4

REPORT INFORMATION
  Report Type: Report from Study
  Country: US (occurrence: US)
  Receive Date: 20131216
  Receipt Date: 20131216
  Transmission Date: 20140711
  Serious: Yes (Other)
  Sender: FDA-Public Use
  Company Number: US-ROCHE-1318699

PATIENT
  Sex: Female

DRUGS (1)
  1. LUCENTIS [Suspect]
     Indication: AGE-RELATED MACULAR DEGENERATION
     Dosage: RIGHT EYE
     Route: 065
     Dates: start: 20121015

REACTIONS (3)
  - Cerebrovascular accident [Unknown]
  - Foreign body sensation in eyes [Unknown]
  - Ocular discomfort [Unknown]
